FAERS Safety Report 6664160-4 (Version None)
Quarter: 2010Q2

REPORT INFORMATION
  Report Type: 
  Country: None (occurrence: None)
  Receive Date: 20100401
  Receipt Date: 20100324
  Transmission Date: 20101027
  Serious: Yes (Hospitalization)
  Sender: FDA-Public Use
  Company Number: D0066210A

PATIENT
  Sex: Male
  Weight: 73 kg

DRUGS (1)
  1. ZEFFIX [Suspect]
     Indication: HEPATITIS B
     Dosage: 100MG PER DAY
     Route: 065
     Dates: start: 20060801

REACTIONS (2)
  - SURGERY [None]
  - TENDON RUPTURE [None]
